FAERS Safety Report 9319641 (Version 1)
Quarter: 2013Q2

REPORT INFORMATION
  Report Type: Spontaneous
  Country: US (occurrence: US)
  Receive Date: 20130530
  Receipt Date: 20130530
  Transmission Date: 20140414
  Serious: No
  Sender: FDA-Public Use
  Company Number: US-GLAXOSMITHKLINE-A1018095A

PATIENT
  Sex: Female

DRUGS (1)
  1. FLOLAN [Suspect]
     Indication: COR PULMONALE CHRONIC
     Dosage: 3NGKM CONTINUOUS
     Route: 042
     Dates: start: 20130313

REACTIONS (8)
  - Limb discomfort [Unknown]
  - Muscle spasms [Unknown]
  - Local swelling [Unknown]
  - Swelling face [Unknown]
  - Catheter site haemorrhage [Unknown]
  - Nasal congestion [Unknown]
  - Nasal discharge discolouration [Unknown]
  - Sinus headache [Unknown]
